FAERS Safety Report 5564701-4 (Version None)
Quarter: 2007Q4

REPORT INFORMATION
  Report Type: 
  Country: None (occurrence: None)
  Receive Date: 20071218
  Receipt Date: 20071204
  Transmission Date: 20080405
  Serious: Yes (Other)
  Sender: FDA-Public Use
  Company Number: US-ELI_LILLY_AND_COMPANY-US200711006533

PATIENT
  Sex: Female
  Weight: 54.875 kg

DRUGS (2)
  1. FORTEO [Suspect]
     Indication: OSTEOPOROSIS
     Dosage: 20 UG, DAILY (1/D)
     Dates: start: 20070925
  2. PREDNISONE [Concomitant]
     Dosage: 10 MG, DAILY (1/D)

REACTIONS (1)
  - BLOOD GLUCOSE INCREASED [None]
